FAERS Safety Report 20950224 (Version 1)
Quarter: 2022Q2

REPORT INFORMATION
  Report Type: Spontaneous
  Country: US (occurrence: None)
  Receive Date: 20220610
  Receipt Date: 20220610
  Transmission Date: 20220721
  Serious: No
  Sender: FDA-Public Use
  Company Number: None

PATIENT
  Age: 65 Year
  Sex: Female
  Weight: 81.45 kg

DRUGS (1)
  1. BEBTELOVIMAB [Suspect]
     Active Substance: BEBTELOVIMAB
     Indication: COVID-19
     Dates: start: 20220608, end: 20220608

REACTIONS (5)
  - Peripheral swelling [None]
  - Pruritus [None]
  - Induration [None]
  - Peripheral swelling [None]
  - Oedema peripheral [None]

NARRATIVE: CASE EVENT DATE: 20220608
